FAERS Safety Report 8194325-4 (Version None)
Quarter: 2012Q1

REPORT INFORMATION
  Report Type: 
  Country: None (occurrence: None)
  Receive Date: 20120308
  Receipt Date: 20120306
  Transmission Date: 20120608
  Serious: No
  Sender: FDA-Public Use
  Company Number: US-PFIZER INC-2012060558

PATIENT
  Sex: Female
  Weight: 68.027 kg

DRUGS (4)
  1. XANAX [Suspect]
     Indication: PANIC ATTACK
  2. XANAX [Suspect]
     Indication: ANXIETY
     Dosage: 1 MG, 3X/DAY
     Route: 048
  3. PROZAC [Concomitant]
     Dosage: UNK
  4. XANAX [Suspect]
     Indication: AGORAPHOBIA

REACTIONS (2)
  - ROAD TRAFFIC ACCIDENT [None]
  - NASOPHARYNGITIS [None]
